FAERS Safety Report 15756984 (Version 1)
Quarter: 2018Q4

REPORT INFORMATION
  Report Type: Spontaneous
  Country: US (occurrence: US)
  Receive Date: 20181206
  Receipt Date: 20181206
  Transmission Date: 20190205
  Serious: Yes (Hospitalization)
  Sender: FDA-Public Use
  Company Number: None

PATIENT
  Age: 69 Year
  Sex: Female
  Weight: 91 kg

DRUGS (3)
  1. DEXAMETHASONE (34521) [Suspect]
     Active Substance: DEXAMETHASONE
  2. LENALIDOMIDE [Concomitant]
     Active Substance: LENALIDOMIDE
  3. VELCADE [Concomitant]
     Active Substance: BORTEZOMIB

REACTIONS (4)
  - Asthenia [None]
  - Hypophagia [None]
  - Arthralgia [None]
  - Oedema peripheral [None]

NARRATIVE: CASE EVENT DATE: 20181204
